FAERS Safety Report 5181108-2 (Version None)
Quarter: 2006Q4

REPORT INFORMATION
  Report Type: 
  Country: None (occurrence: None)
  Receive Date: 20061220
  Receipt Date: 20061212
  Transmission Date: 20070319
  Serious: Yes (Hospitalization)
  Sender: FDA-Public Use
  Company Number: FR-SOLVAY-00206004110

PATIENT
  Age: 72 Year
  Sex: Female

DRUGS (6)
  1. TAHOR [Concomitant]
     Indication: ILL-DEFINED DISORDER
     Dosage: DAILY DOSE:  UNKNOWN
     Route: 065
  2. PERINDOPRIL ERBUMINE [Suspect]
     Indication: ILL-DEFINED DISORDER
     Dosage: DAILY DOSE: 4 MILLIGRAM(S)
     Route: 048
     Dates: start: 20061111, end: 20061113
  3. LANTUS [Concomitant]
     Indication: ILL-DEFINED DISORDER
     Dosage: DAILY DOSE:  UNKNOWN
     Route: 065
  4. KETOPROFEN [Interacting]
     Indication: ILL-DEFINED DISORDER
     Dosage: DAILY DOSE: 200 MILLIGRAM(S)
     Route: 040
     Dates: start: 20061109, end: 20061112
  5. AMIODARONE HCL [Concomitant]
     Indication: ILL-DEFINED DISORDER
     Dosage: DAILY DOSE:  UNKNOWN
     Route: 048
  6. ROCEPHIN [Concomitant]
     Indication: ILL-DEFINED DISORDER
     Dosage: DAILY DOSE:  UNKNOWN
     Route: 065
     Dates: start: 20061106, end: 20061116

REACTIONS (2)
  - BLOOD CREATININE INCREASED [None]
  - DRUG INTERACTION [None]
